FAERS Safety Report 11424380 (Version 2)
Quarter: 2015Q3

REPORT INFORMATION
  Report Type: Spontaneous
  Country: ES (occurrence: ES)
  Receive Date: 20150827
  Receipt Date: 20150917
  Transmission Date: 20151125
  Serious: Yes (Hospitalization)
  Sender: FDA-Public Use
  Company Number: ES-PFIZER INC-2015282961

PATIENT
  Age: 62 Year
  Sex: Male

DRUGS (3)
  1. REXER [Concomitant]
     Active Substance: MIRTAZAPINE
     Dosage: 30 MG, UNK
  2. ZYVOXID [Suspect]
     Active Substance: LINEZOLID
     Dosage: 10 BAGS OF 300 ML
     Route: 042
     Dates: start: 20150502
  3. CEFTAZIDIMA (CEFTAZIDIME) [Suspect]
     Active Substance: CEFTAZIDIME
     Indication: PSEUDOMONAS INFECTION
     Dosage: 3 G, 3X/DAY
     Route: 042
     Dates: start: 20150502

REACTIONS (3)
  - Acute kidney injury [Recovered/Resolved]
  - Incorrect dose administered [Recovered/Resolved]
  - Generalised tonic-clonic seizure [Recovered/Resolved]

NARRATIVE: CASE EVENT DATE: 20150502
